FAERS Safety Report 8240619-3 (Version None)
Quarter: 2012Q1

REPORT INFORMATION
  Report Type: 
  Country: None (occurrence: None)
  Receive Date: 20120328
  Receipt Date: 20120313
  Transmission Date: 20120608
  Serious: Yes (Other)
  Sender: FDA-Public Use
  Company Number: KR-CELGENEUS-286-50794-10122120

PATIENT

DRUGS (4)
  1. DECITABINE [Suspect]
     Dosage: 20 MILLIGRAM/SQ. METER
     Route: 041
  2. ITRACONAZOLE [Concomitant]
     Indication: ANTIFUNGAL PROPHYLAXIS
  3. VIDAZA [Suspect]
     Dosage: 75 MILLIGRAM/SQ. METER
     Route: 058
  4. CIPROFLOXACIN [Concomitant]
     Route: 048

REACTIONS (9)
  - MYELODYSPLASTIC SYNDROME TRANSFORMATION [None]
  - ACUTE MYELOID LEUKAEMIA [None]
  - DRUG INEFFECTIVE [None]
  - PANCYTOPENIA [None]
  - ACUTE GRAFT VERSUS HOST DISEASE [None]
  - MYELODYSPLASTIC SYNDROME [None]
  - VENOOCCLUSIVE DISEASE [None]
  - CHRONIC GRAFT VERSUS HOST DISEASE [None]
  - TREATMENT FAILURE [None]
